FAERS Safety Report 8462904-2 (Version None)
Quarter: 2012Q2

REPORT INFORMATION
  Report Type: 
  Country: None (occurrence: None)
  Receive Date: 20120625
  Receipt Date: 20120614
  Transmission Date: 20120825
  Serious: Yes (Death, Hospitalization)
  Sender: FDA-Public Use
  Company Number: FR-ROCHE-1078822

PATIENT
  Age: 10 Day
  Sex: Male

DRUGS (9)
  1. FOSPHENYTOIN SODIUM [Suspect]
     Dates: end: 20120317
  2. SUFENTANIL CITRATE [Suspect]
     Indication: ANAESTHESIA
     Dates: start: 20120316
  3. FOSPHENYTOIN SODIUM [Suspect]
     Indication: STATUS EPILEPTICUS
     Dates: start: 20120316
  4. MIDAZOLAM HYDROCHLORIDE [Suspect]
     Indication: ANAESTHESIA
     Dates: start: 20120316
  5. CLONAZEPAM [Suspect]
     Indication: STATUS EPILEPTICUS
     Dates: start: 20120316
  6. PHENOBARBITAL TAB [Suspect]
     Indication: STATUS EPILEPTICUS
     Dates: start: 20120316
  7. KEPPRA [Suspect]
     Indication: STATUS EPILEPTICUS
     Dates: start: 20120317
  8. KEPPRA [Suspect]
  9. VITAMIN B6 [Concomitant]
     Dates: start: 20120316

REACTIONS (1)
  - INTESTINAL ISCHAEMIA [None]
